FAERS Safety Report 19987225 (Version 1)
Quarter: 2021Q4

REPORT INFORMATION
  Report Type: Report from Study
  Country: FR (occurrence: FR)
  Receive Date: 20211022
  Receipt Date: 20211022
  Transmission Date: 20220303
  Serious: Yes (Hospitalization, Other)
  Sender: FDA-Public Use
  Company Number: FR-SHIRE-FR201812284

PATIENT
  Age: 12 Year
  Sex: Male

DRUGS (19)
  1. METHOTREXATE [Suspect]
     Active Substance: METHOTREXATE
     Indication: Acute lymphocytic leukaemia
     Dosage: 6890 MG, UNK
     Route: 042
     Dates: start: 20180205, end: 20180305
  2. METHOTREXATE [Suspect]
     Active Substance: METHOTREXATE
     Dosage: 6200 MG, UNK
     Route: 042
     Dates: start: 20180206, end: 20180306
  3. METHOTREXATE [Suspect]
     Active Substance: METHOTREXATE
     Dosage: 690 UNK, UNK
     Route: 042
     Dates: start: 20180205, end: 20180305
  4. METHOTREXATE [Suspect]
     Active Substance: METHOTREXATE
     Indication: Acute lymphocytic leukaemia
     Dosage: 15 MG, UNK
     Route: 037
     Dates: start: 20180206, end: 20180306
  5. PEGASPARGASE [Suspect]
     Active Substance: PEGASPARGASE
     Indication: Acute lymphocytic leukaemia
     Dosage: 3300 IU, UNK
     Route: 042
     Dates: start: 20171107, end: 20171107
  6. PEGASPARGASE [Suspect]
     Active Substance: PEGASPARGASE
     Dosage: 3450 IU, UNK
     Route: 042
  7. PEGASPARGASE [Suspect]
     Active Substance: PEGASPARGASE
     Dosage: 3450 IU, UNK
     Route: 042
     Dates: start: 20180403
  8. MERCAPTOPURINE [Suspect]
     Active Substance: MERCAPTOPURINE
     Indication: Acute lymphocytic leukaemia
     Dosage: 50 MG, UNK
     Route: 048
  9. MERCAPTOPURINE [Suspect]
     Active Substance: MERCAPTOPURINE
     Dosage: 50 MG, UNK
     Route: 048
     Dates: start: 20180129
  10. CYTARABINE [Suspect]
     Active Substance: CYTARABINE
     Indication: Acute lymphocytic leukaemia
     Dosage: 100 MG, UNK
     Route: 040
     Dates: start: 20180102, end: 20180110
  11. LEUCOVORIN [Suspect]
     Active Substance: LEUCOVORIN
     Indication: Acute lymphocytic leukaemia
     Dosage: 20 MG, UNK
     Route: 048
     Dates: start: 20180207, end: 20180308
  12. DOXORUBICIN [Suspect]
     Active Substance: DOXORUBICIN
     Indication: Product used for unknown indication
     Dosage: 41 MG, UNK
     Route: 042
  13. DOXORUBICIN [Suspect]
     Active Substance: DOXORUBICIN
     Dosage: 42 MG, UNK
     Route: 042
     Dates: start: 20180330, end: 20180406
  14. DOXORUBICIN [Suspect]
     Active Substance: DOXORUBICIN
     Dosage: 41 MG, UNK
     Route: 042
     Dates: start: 20180406
  15. MESNA [Suspect]
     Active Substance: MESNA
     Indication: Acute lymphocytic leukaemia
     Dosage: 540 MG, UNK
     Route: 040
  16. MESNA [Suspect]
     Active Substance: MESNA
     Dosage: 540 MG, UNK
     Route: 040
     Dates: start: 20180110
  17. VINCRISTINE [Suspect]
     Active Substance: VINCRISTINE
     Indication: Acute lymphocytic leukaemia
     Dosage: 2 MG, UNK
     Route: 042
     Dates: start: 20180330, end: 20180406
  18. CYCLOPHOSPHAMIDE [Suspect]
     Active Substance: CYCLOPHOSPHAMIDE
     Indication: Acute lymphocytic leukaemia
     Dosage: 1340 MG, UNK
     Route: 042
  19. CYCLOPHOSPHAMIDE [Suspect]
     Active Substance: CYCLOPHOSPHAMIDE
     Dosage: 1340 MG, UNK
     Route: 042
     Dates: start: 20180110

REACTIONS (1)
  - Ischaemic stroke [Not Recovered/Not Resolved]

NARRATIVE: CASE EVENT DATE: 20180315
